FAERS Safety Report 24971820 (Version 1)
Quarter: 2025Q1

REPORT INFORMATION
  Report Type: Spontaneous
  Country: TW (occurrence: TW)
  Receive Date: 20250214
  Receipt Date: 20250214
  Transmission Date: 20250408
  Serious: Yes (Death)
  Sender: PFIZER
  Company Number: TW-PFIZER INC-PV202500018125

PATIENT
  Sex: Female

DRUGS (1)
  1. XELJANZ XR [Suspect]
     Active Substance: TOFACITINIB CITRATE
     Indication: Rheumatoid arthritis
     Dosage: 11 MG, QD
     Route: 048
     Dates: start: 201612, end: 202502

REACTIONS (1)
  - Death [Fatal]

NARRATIVE: CASE EVENT DATE: 20250206
